FAERS Safety Report 18726980 (Version 1)
Quarter: 2021Q1

REPORT INFORMATION
  Report Type: Spontaneous
  Country: US (occurrence: US)
  Receive Date: 20210111
  Receipt Date: 20210111
  Transmission Date: 20210419
  Serious: Yes (Hospitalization, Other)
  Sender: FDA-Public Use
  Company Number: US-VALIDUS PHARMACEUTICALS LLC-US-2021VAL000018

PATIENT
  Age: 65 Year
  Sex: Male

DRUGS (1)
  1. FUROSEMIDE. [Suspect]
     Active Substance: FUROSEMIDE
     Indication: OEDEMA PERIPHERAL
     Dosage: 20 MG, QD
     Route: 048

REACTIONS (9)
  - Toxicity to various agents [Not Recovered/Not Resolved]
  - Tubulointerstitial nephritis [Not Recovered/Not Resolved]
  - Hyperkalaemia [Not Recovered/Not Resolved]
  - Oliguria [Not Recovered/Not Resolved]
  - Oedema [Unknown]
  - Acute kidney injury [Not Recovered/Not Resolved]
  - Renal tubular disorder [Not Recovered/Not Resolved]
  - Drug ineffective [Unknown]
  - Eosinophilia [Not Recovered/Not Resolved]
